FAERS Safety Report 9287874 (Version 1)
Quarter: 2013Q2

REPORT INFORMATION
  Report Type: Spontaneous
  Country: US (occurrence: None)
  Receive Date: 20130513
  Receipt Date: 20130513
  Transmission Date: 20140414
  Serious: No
  Sender: FDA-Public Use
  Company Number: None

PATIENT
  Age: 53 Year
  Sex: Male
  Weight: 75.5 kg

DRUGS (4)
  1. IMMUNE GLOBULIN [Suspect]
     Indication: GUILLAIN-BARRE SYNDROME
     Dosage: X5
     Route: 042
     Dates: start: 20130502, end: 20130506
  2. PRIVIGEN [Concomitant]
  3. IMMUNE GLOBULIN [Concomitant]
  4. ISOTONIC STERILE DILUENT [Concomitant]

REACTIONS (1)
  - Guillain-Barre syndrome [None]
